FAERS Safety Report 17685909 (Version 3)
Quarter: 2021Q2

REPORT INFORMATION
  Report Type: Spontaneous
  Country: US (occurrence: US)
  Receive Date: 20200420
  Receipt Date: 20210414
  Transmission Date: 20210716
  Serious: Yes (Death, Hospitalization, Other)
  Sender: FDA-Public Use
  Company Number: US-ASTRAZENECA-2020SE50595

PATIENT
  Age: 27399 Day
  Sex: Male
  Weight: 101.6 kg

DRUGS (54)
  1. NEXIUM 24HR [Suspect]
     Active Substance: ESOMEPRAZOLE MAGNESIUM
     Indication: GASTROOESOPHAGEAL REFLUX DISEASE
     Route: 048
     Dates: start: 200404, end: 200703
  2. CLINDAMYCIN. [Concomitant]
     Active Substance: CLINDAMYCIN
  3. NITROFURANTOIN. [Concomitant]
     Active Substance: NITROFURANTOIN
  4. AMLODIPINE [Concomitant]
     Active Substance: AMLODIPINE BESYLATE
  5. BACLOFEN. [Concomitant]
     Active Substance: BACLOFEN
  6. CLOPIDOGREL [Concomitant]
     Active Substance: CLOPIDOGREL BISULFATE
  7. HYDRALAZINE [Concomitant]
     Active Substance: HYDRALAZINE HYDROCHLORIDE
  8. ZOFRAN [Concomitant]
     Active Substance: ONDANSETRON HYDROCHLORIDE
  9. WARFARIN [Concomitant]
     Active Substance: WARFARIN
     Dates: start: 200708, end: 201609
  10. LORAZEPAM. [Concomitant]
     Active Substance: LORAZEPAM
     Indication: ANXIETY
     Dates: start: 200610, end: 201606
  11. GABAPENTIN. [Concomitant]
     Active Substance: GABAPENTIN
  12. CIPROFLOXACIN. [Concomitant]
     Active Substance: CIPROFLOXACIN
  13. COLCHICINE. [Concomitant]
     Active Substance: COLCHICINE
  14. PRAVASTATIN. [Concomitant]
     Active Substance: PRAVASTATIN
  15. MECLIZINE [Concomitant]
     Active Substance: MECLIZINE HYDROCHLORIDE
  16. ATORVASTATIN [Concomitant]
     Active Substance: ATORVASTATIN
     Indication: BLOOD CHOLESTEROL ABNORMAL
     Dates: start: 201505, end: 201606
  17. NUVIGIL [Concomitant]
     Active Substance: ARMODAFINIL
  18. LISINOPRIL. [Concomitant]
     Active Substance: LISINOPRIL
  19. BALACET [Concomitant]
  20. METHYLPREDNISOLONE. [Concomitant]
     Active Substance: METHYLPREDNISOLONE
  21. AZITHROMYCIN ANHYDROUS. [Concomitant]
     Active Substance: AZITHROMYCIN ANHYDROUS
  22. METOPROLOL. [Concomitant]
     Active Substance: METOPROLOL
  23. INDOMETHACIN. [Concomitant]
     Active Substance: INDOMETHACIN
  24. MOMETASONE [Concomitant]
     Active Substance: MOMETASONE
  25. KLOR?CON [Concomitant]
     Active Substance: POTASSIUM CHLORIDE
  26. TUMS [Concomitant]
     Active Substance: CALCIUM CARBONATE
  27. BACTRIM [Concomitant]
     Active Substance: SULFAMETHOXAZOLE\TRIMETHOPRIM
  28. TRAMADOL. [Concomitant]
     Active Substance: TRAMADOL
  29. TRIAMCINOLONE [Concomitant]
     Active Substance: TRIAMCINOLONE
  30. ALLOPURINOL. [Concomitant]
     Active Substance: ALLOPURINOL
  31. REGLAN [Concomitant]
     Active Substance: METOCLOPRAMIDE HYDROCHLORIDE
  32. ANCEF [Concomitant]
     Active Substance: CEFAZOLIN SODIUM
  33. HYDROCODONE BITARTRATE AND ACETAMINOPHEN [Concomitant]
     Active Substance: ACETAMINOPHEN\HYDROCODONE BITARTRATE
  34. FEXOFENADINE [Concomitant]
     Active Substance: FEXOFENADINE HYDROCHLORIDE
  35. HYDROXYZINE [Concomitant]
     Active Substance: HYDROXYZINE HYDROCHLORIDE
  36. NEXIUM [Suspect]
     Active Substance: ESOMEPRAZOLE MAGNESIUM
     Indication: GASTROOESOPHAGEAL REFLUX DISEASE
     Route: 048
     Dates: start: 200404, end: 200703
  37. GENTAMICIN. [Concomitant]
     Active Substance: GENTAMICIN
  38. MILK OF MAGNESIA [Concomitant]
     Active Substance: MAGNESIUM HYDROXIDE
  39. NEXIUM [Suspect]
     Active Substance: ESOMEPRAZOLE MAGNESIUM
     Indication: GASTROOESOPHAGEAL REFLUX DISEASE
     Route: 048
     Dates: start: 2006, end: 2017
  40. NEXIUM 24HR [Suspect]
     Active Substance: ESOMEPRAZOLE MAGNESIUM
     Indication: GASTROOESOPHAGEAL REFLUX DISEASE
     Route: 048
     Dates: start: 2015, end: 2017
  41. PROTONIX [Suspect]
     Active Substance: PANTOPRAZOLE SODIUM
     Indication: GASTROOESOPHAGEAL REFLUX DISEASE
     Route: 065
     Dates: start: 201403
  42. FUROSEMIDE. [Concomitant]
     Active Substance: FUROSEMIDE
     Indication: SWELLING
     Dates: start: 201110, end: 201506
  43. METOPROLOL. [Concomitant]
     Active Substance: METOPROLOL
     Indication: BLOOD PRESSURE ABNORMAL
     Dates: start: 201103, end: 201606
  44. MAALOX ANTACID [Concomitant]
     Active Substance: ALUMINUM HYDROXIDE\DIMETHICONE\MAGNESIUM HYDROXIDE
  45. VYTORIN [Concomitant]
     Active Substance: EZETIMIBE\SIMVASTATIN
  46. ATENOLOL. [Concomitant]
     Active Substance: ATENOLOL
  47. MUPIROCIN. [Concomitant]
     Active Substance: MUPIROCIN
  48. NITROGLYCERIN. [Concomitant]
     Active Substance: NITROGLYCERIN
  49. LORATADINE. [Concomitant]
     Active Substance: LORATADINE
  50. RESTORIL [Concomitant]
     Active Substance: TEMAZEPAM
  51. LEVOTHYROXINE. [Concomitant]
     Active Substance: LEVOTHYROXINE
     Indication: THYROID DISORDER
     Dates: start: 200611, end: 201606
  52. HYDROCODONE [Concomitant]
     Active Substance: HYDROCODONE
     Indication: PAIN
     Dates: start: 200611, end: 201505
  53. ISOSORBIDE. [Concomitant]
     Active Substance: ISOSORBIDE
  54. DOXAZOSIN [Concomitant]
     Active Substance: DOXAZOSIN MESYLATE

REACTIONS (5)
  - Nephrogenic anaemia [Unknown]
  - Chronic kidney disease [Unknown]
  - End stage renal disease [Unknown]
  - Renal injury [Unknown]
  - Renal failure [Unknown]

NARRATIVE: CASE EVENT DATE: 20140427
